FAERS Safety Report 24929541 (Version 1)
Quarter: 2025Q1

REPORT INFORMATION
  Report Type: Spontaneous
  Country: US (occurrence: US)
  Receive Date: 20250205
  Receipt Date: 20250205
  Transmission Date: 20250408
  Serious: No
  Sender: SANOFI AVENTIS
  Company Number: US-SA-2025SA034067

PATIENT
  Age: 58 Year
  Sex: Female
  Weight: 68.18 kg

DRUGS (8)
  1. DUPIXENT [Suspect]
     Active Substance: DUPILUMAB
     Indication: Psoriasis
     Dosage: 300MG UNDER THE SKIN EVERY OTHER WEEK
     Route: 058
  2. DUPIXENT [Suspect]
     Active Substance: DUPILUMAB
     Indication: Dermatitis
  3. CIMZIA [Concomitant]
     Active Substance: CERTOLIZUMAB PEGOL
  4. Nivea [Concomitant]
  5. VASELINE PURE [Concomitant]
     Active Substance: PETROLATUM
  6. VANICREAM [Concomitant]
     Active Substance: TITANIUM DIOXIDE\ZINC OXIDE
  7. DERMAREST ECZEMA [Concomitant]
  8. ADVIL [Concomitant]
     Active Substance: IBUPROFEN

REACTIONS (3)
  - Tooth infection [Unknown]
  - Drug ineffective for unapproved indication [Unknown]
  - Product use in unapproved indication [Unknown]
